FAERS Safety Report 15402023 (Version 1)
Quarter: 2018Q3

REPORT INFORMATION
  Report Type: Spontaneous
  Country: US (occurrence: US)
  Receive Date: 20180914
  Receipt Date: 20180914
  Transmission Date: 20181010
  Serious: Yes (Other)
  Sender: FDA-Public Use
  Company Number: None

PATIENT
  Age: 57 Year
  Sex: Male
  Weight: 63 kg

DRUGS (3)
  1. BACLOFEN 20MG. TABLET [Suspect]
     Active Substance: BACLOFEN
     Indication: SPINAL CORD INJURY
     Dosage: ?          QUANTITY:100 TABLET(S);?
     Route: 048
     Dates: start: 20180810, end: 20180906
  2. CENTRUM SILVER [Concomitant]
     Active Substance: MINERALS\VITAMINS
  3. BACLOFEN 20MG. TABLET [Suspect]
     Active Substance: BACLOFEN
     Indication: MUSCLE SPASMS
     Dosage: ?          QUANTITY:100 TABLET(S);?
     Route: 048
     Dates: start: 20180810, end: 20180906

REACTIONS (4)
  - Pain in extremity [None]
  - Gait disturbance [None]
  - Product substitution issue [None]
  - Muscle spasms [None]

NARRATIVE: CASE EVENT DATE: 20180810
